FAERS Safety Report 10389651 (Version 1)
Quarter: 2014Q3

REPORT INFORMATION
  Report Type: Report from Study
  Country: US (occurrence: US)
  Receive Date: 20140818
  Receipt Date: 20140818
  Transmission Date: 20150326
  Serious: Yes (Death)
  Sender: FDA-Public Use
  Company Number: US-ROCHE-1398200

PATIENT
  Age: 64 Year
  Sex: Male

DRUGS (28)
  1. CYTOXAN [Concomitant]
     Active Substance: CYCLOPHOSPHAMIDE
     Indication: DIFFUSE LARGE B-CELL LYMPHOMA
     Dosage: DOSE 1,470 MG
     Route: 041
     Dates: start: 20101201
  2. PREDNISONE. [Concomitant]
     Active Substance: PREDNISONE
     Route: 065
     Dates: start: 20110217
  3. ALOXI [Concomitant]
     Active Substance: PALONOSETRON HYDROCHLORIDE
     Route: 041
  4. BENADRYL [Concomitant]
     Active Substance: DIPHENHYDRAMINE HYDROCHLORIDE
     Route: 041
  5. CYTOXAN [Concomitant]
     Active Substance: CYCLOPHOSPHAMIDE
     Dosage: DOSE 1,470 MG
     Route: 041
     Dates: start: 20110217
  6. RITUXAN [Suspect]
     Active Substance: RITUXIMAB
     Route: 041
     Dates: start: 20110311
  7. CYTOXAN [Concomitant]
     Active Substance: CYCLOPHOSPHAMIDE
     Dosage: DOSE 1,470 MG
     Route: 041
     Dates: start: 20110127
  8. ADRIAMYCIN [Concomitant]
     Active Substance: DOXORUBICIN HYDROCHLORIDE
     Route: 040
     Dates: start: 20110105
  9. PREDNISONE. [Concomitant]
     Active Substance: PREDNISONE
     Route: 065
     Dates: start: 20110115
  10. VINCRISTINE [Concomitant]
     Active Substance: VINCRISTINE
     Indication: DIFFUSE LARGE B-CELL LYMPHOMA
     Route: 040
     Dates: start: 20101201
  11. ADRIAMYCIN [Concomitant]
     Active Substance: DOXORUBICIN HYDROCHLORIDE
     Route: 040
     Dates: start: 20110217
  12. ADRIAMYCIN [Concomitant]
     Active Substance: DOXORUBICIN HYDROCHLORIDE
     Route: 040
     Dates: start: 20110311
  13. PREDNISONE. [Concomitant]
     Active Substance: PREDNISONE
     Indication: DIFFUSE LARGE B-CELL LYMPHOMA
     Dosage: TAKE FOR 5 DAYS
     Route: 065
     Dates: start: 20101201
  14. RITUXAN [Suspect]
     Active Substance: RITUXIMAB
     Route: 041
     Dates: start: 20110127
  15. DECADRON [Concomitant]
     Active Substance: DEXAMETHASONE
     Route: 041
  16. CYTOXAN [Concomitant]
     Active Substance: CYCLOPHOSPHAMIDE
     Dosage: DOSE 1,470 MG
     Route: 041
     Dates: start: 20110311
  17. PREDNISONE. [Concomitant]
     Active Substance: PREDNISONE
     Route: 065
     Dates: start: 20110127
  18. RITUXAN [Suspect]
     Active Substance: RITUXIMAB
     Route: 041
     Dates: start: 20110105
  19. RITUXAN [Suspect]
     Active Substance: RITUXIMAB
     Route: 041
     Dates: start: 20110217
  20. CYTOXAN [Concomitant]
     Active Substance: CYCLOPHOSPHAMIDE
     Dosage: DOSE 1,470 MG
     Route: 041
     Dates: start: 20110105
  21. RITUXAN [Suspect]
     Active Substance: RITUXIMAB
     Indication: DIFFUSE LARGE B-CELL LYMPHOMA
     Route: 041
     Dates: start: 20101201
  22. VINCRISTINE [Concomitant]
     Active Substance: VINCRISTINE
     Route: 040
     Dates: start: 20110127
  23. VINCRISTINE [Concomitant]
     Active Substance: VINCRISTINE
     Route: 040
     Dates: start: 20110311
  24. TYLENOL [Concomitant]
     Active Substance: ACETAMINOPHEN
     Dosage: 1,000 MG
     Route: 048
  25. VINCRISTINE [Concomitant]
     Active Substance: VINCRISTINE
     Route: 040
     Dates: start: 20110105
  26. VINCRISTINE [Concomitant]
     Active Substance: VINCRISTINE
     Route: 040
     Dates: start: 20110217
  27. ADRIAMYCIN [Concomitant]
     Active Substance: DOXORUBICIN HYDROCHLORIDE
     Indication: DIFFUSE LARGE B-CELL LYMPHOMA
     Route: 040
     Dates: start: 20101201
  28. ADRIAMYCIN [Concomitant]
     Active Substance: DOXORUBICIN HYDROCHLORIDE
     Route: 040
     Dates: start: 20110127

REACTIONS (2)
  - Contusion [Unknown]
  - Death [Fatal]

NARRATIVE: CASE EVENT DATE: 20110311
